FAERS Safety Report 5502858-1 (Version None)
Quarter: 2007Q4

REPORT INFORMATION
  Report Type: 
  Country: None (occurrence: None)
  Receive Date: 20071029
  Receipt Date: 20071029
  Transmission Date: 20080405
  Serious: No
  Sender: FDA-Public Use
  Company Number: None

PATIENT
  Age: 84 Year
  Sex: Male
  Weight: 95.2554 kg

DRUGS (1)
  1. TRICOR [Suspect]
     Indication: BLOOD CHOLESTEROL INCREASED
     Dosage: 162 MG DAILY PO
     Route: 048
     Dates: start: 20000101, end: 20060105

REACTIONS (10)
  - ABASIA [None]
  - ABDOMINAL PAIN [None]
  - BALANCE DISORDER [None]
  - BLADDER DISORDER [None]
  - CONSTIPATION [None]
  - FALL [None]
  - MUSCULAR WEAKNESS [None]
  - MYALGIA [None]
  - PRURITUS [None]
  - SEXUAL DYSFUNCTION [None]
